FAERS Safety Report 6668862-5 (Version None)
Quarter: 2010Q2

REPORT INFORMATION
  Report Type: 
  Country: None (occurrence: None)
  Receive Date: 20100401
  Receipt Date: 20100308
  Transmission Date: 20101027
  Serious: Yes (Hospitalization, Other)
  Sender: FDA-Public Use
  Company Number: AUR-APL-2010-00716

PATIENT
  Age: 20 Year
  Sex: Female

DRUGS (1)
  1. AMLODIPINE [Suspect]
     Indication: SUICIDE ATTEMPT
     Dosage: 420MG - X1 - INGESTION

REACTIONS (8)
  - HYPOTENSION [None]
  - INCORRECT DOSE ADMINISTERED [None]
  - PERIPHERAL COLDNESS [None]
  - RHONCHI [None]
  - SELF-MEDICATION [None]
  - SINUS TACHYCARDIA [None]
  - SOMNOLENCE [None]
  - SUICIDE ATTEMPT [None]
